FAERS Safety Report 10279987 (Version 1)
Quarter: 2014Q3

REPORT INFORMATION
  Report Type: Spontaneous
  Country: US (occurrence: None)
  Receive Date: 20140702
  Receipt Date: 20140702
  Transmission Date: 20150326
  Serious: Yes (Hospitalization)
  Sender: FDA-Public Use
  Company Number: 2014JUB00006

PATIENT
  Age: 33 Year
  Sex: Female

DRUGS (3)
  1. BUPROPION [Suspect]
     Active Substance: BUPROPION
  2. GABAPENTIN (GABAPENTIN) [Suspect]
     Active Substance: GABAPENTIN
  3. ETHANOL (ETHANOL) [Suspect]
     Active Substance: ALCOHOL

REACTIONS (9)
  - Acute lung injury [None]
  - Intentional overdose [None]
  - Toxicity to various agents [None]
  - Myoclonus [None]
  - Electroencephalogram abnormal [None]
  - Hypotension [None]
  - Convulsion [None]
  - Electrocardiogram QT prolonged [None]
  - Mental status changes [None]
